FAERS Safety Report 9331368 (Version 1)
Quarter: 2013Q2

REPORT INFORMATION
  Report Type: Spontaneous
  Country: US (occurrence: US)
  Receive Date: 20130605
  Receipt Date: 20130605
  Transmission Date: 20140414
  Serious: No
  Sender: FDA-Public Use
  Company Number: US-009507513-1305USA017154

PATIENT
  Age: 31 Year
  Sex: Female

DRUGS (3)
  1. NEXPLANON [Suspect]
     Indication: CONTRACEPTION
     Dosage: 1 IMPLANT
     Route: 059
     Dates: start: 20130521, end: 20130523
  2. VITAMINS (UNSPECIFIED) [Concomitant]
  3. CALCIUM (UNSPECIFIED) [Concomitant]

REACTIONS (4)
  - Cellulitis [Recovering/Resolving]
  - Implant site bruising [Recovered/Resolved]
  - Limb discomfort [Not Recovered/Not Resolved]
  - Medical device complication [Unknown]
